FAERS Safety Report 6012510-4 (Version None)
Quarter: 2008Q4

REPORT INFORMATION
  Report Type: 
  Country: None (occurrence: None)
  Receive Date: 20081218
  Receipt Date: 20081212
  Transmission Date: 20090506
  Serious: Yes (Hospitalization)
  Sender: FDA-Public Use
  Company Number: US-ROXANE LABORATORIES, INC.-2008-RO-00442RO

PATIENT
  Sex: Male
  Weight: 104 kg

DRUGS (11)
  1. PREDNISONE [Suspect]
     Indication: PROSTATE CANCER METASTATIC
     Dosage: 10MG
     Route: 048
     Dates: start: 20081126
  2. ENZASTAURIN [Suspect]
     Indication: PROSTATE CANCER METASTATIC
     Route: 048
     Dates: start: 20081125, end: 20081125
  3. ENZASTAURIN [Suspect]
     Route: 048
     Dates: start: 20081126
  4. DOCETAXEL [Suspect]
     Indication: PROSTATE CANCER METASTATIC
     Route: 042
     Dates: start: 20081126
  5. COMPAZINE [Concomitant]
     Dates: start: 20081126
  6. VICODIN [Concomitant]
     Dates: start: 20081119
  7. XANAX [Concomitant]
     Dates: start: 20081029
  8. DICYCLOMINE [Concomitant]
     Dates: start: 20081029
  9. LUPRON [Concomitant]
  10. GLUCOVANCE [Concomitant]
  11. ACTOS [Concomitant]

REACTIONS (7)
  - ANOREXIA [None]
  - DEHYDRATION [None]
  - DIARRHOEA [None]
  - DIZZINESS [None]
  - HYPERGLYCAEMIA [None]
  - NAUSEA [None]
  - VOMITING [None]
